FAERS Safety Report 9722817 (Version 1)
Quarter: 2013Q4

REPORT INFORMATION
  Report Type: Spontaneous
  Country: US (occurrence: None)
  Receive Date: 20131126
  Receipt Date: 20131126
  Transmission Date: 20140711
  Serious: Yes (Hospitalization)
  Sender: FDA-Public Use
  Company Number: LIT-13-0052

PATIENT
  Age: 7 Day
  Sex: Male

DRUGS (1)
  1. ERYTHROMYCIN [Suspect]
     Indication: CONJUNCTIVITIS
     Dosage: 50MG/KG QD, ORAL
     Route: 048

REACTIONS (1)
  - Pyloric stenosis [None]
